FAERS Safety Report 12087574 (Version 1)
Quarter: 2016Q1

REPORT INFORMATION
  Report Type: Spontaneous
  Country: US (occurrence: US)
  Receive Date: 20160217
  Receipt Date: 20160217
  Transmission Date: 20160526
  Serious: No
  Sender: FDA-Public Use
  Company Number: US-ALLERGAN-1514589US

PATIENT
  Sex: Female
  Weight: 52.61 kg

DRUGS (10)
  1. LUNESTA [Concomitant]
     Active Substance: ESZOPICLONE
  2. RESTASIS [Suspect]
     Active Substance: CYCLOSPORINE
     Indication: DRY EYE
     Dosage: UNK
     Route: 047
     Dates: start: 201401
  3. LASIX [Concomitant]
     Active Substance: FUROSEMIDE
  4. FUROSEMIDE. [Concomitant]
     Active Substance: FUROSEMIDE
  5. LEVOTHYROXINE. [Concomitant]
     Active Substance: LEVOTHYROXINE
  6. COUMADIN [Concomitant]
     Active Substance: WARFARIN SODIUM
  7. NIFEDIPINE. [Concomitant]
     Active Substance: NIFEDIPINE
  8. COREG [Concomitant]
     Active Substance: CARVEDILOL
  9. PROCRIT [Concomitant]
     Active Substance: ERYTHROPOIETIN
  10. LOSARTAN. [Concomitant]
     Active Substance: LOSARTAN

REACTIONS (4)
  - Eye irritation [Not Recovered/Not Resolved]
  - Eye discharge [Not Recovered/Not Resolved]
  - Lacrimation increased [Not Recovered/Not Resolved]
  - Photophobia [Not Recovered/Not Resolved]
